FAERS Safety Report 17887674 (Version 1)
Quarter: 2020Q2

REPORT INFORMATION
  Report Type: Spontaneous
  Country: US (occurrence: US)
  Receive Date: 20200612
  Receipt Date: 20200612
  Transmission Date: 20200714
  Serious: Yes (Death, Life-Threatening, Hospitalization, Other)
  Sender: FDA-Public Use
  Company Number: US-ALKEM LABORATORIES LIMITED-US-ALKEM-2020-02648

PATIENT
  Age: 59 Year
  Sex: Female

DRUGS (3)
  1. LOPINAVIR, RITONAVIR [Suspect]
     Active Substance: LOPINAVIR\RITONAVIR
     Indication: COVID-19
     Dosage: UNK
     Route: 065
     Dates: start: 202003, end: 202003
  2. MYCOPHENOLATE MOFETIL. [Suspect]
     Active Substance: MYCOPHENOLATE MOFETIL
     Indication: IMMUNOSUPPRESSANT DRUG THERAPY
     Dosage: 360 MILLIGRAM, BID
     Route: 065
     Dates: start: 2012
  3. TACROLIMUS. [Suspect]
     Active Substance: TACROLIMUS
     Indication: IMMUNOSUPPRESSANT DRUG THERAPY
     Dosage: 6 MILLIGRAM, BID
     Route: 065
     Dates: start: 202003, end: 202003

REACTIONS (9)
  - Drug interaction [Unknown]
  - Multiple organ dysfunction syndrome [Fatal]
  - Acute respiratory distress syndrome [Fatal]
  - Immunosuppressant drug level increased [Unknown]
  - Pneumocystis jirovecii pneumonia [Fatal]
  - Respiratory failure [Fatal]
  - Renal failure [Fatal]
  - Vasoplegia syndrome [Fatal]
  - COVID-19 [Fatal]

NARRATIVE: CASE EVENT DATE: 202003
